FAERS Safety Report 9354414 (Version 1)
Quarter: 2013Q2

REPORT INFORMATION
  Report Type: Spontaneous
  Country: US (occurrence: US)
  Receive Date: 20130618
  Receipt Date: 20130618
  Transmission Date: 20140414
  Serious: No
  Sender: FDA-Public Use
  Company Number: US-COVIDIEN/TYCO HEALTHCARE/MALLINCKRODT-T201204303

PATIENT
  Age: 6 Week
  Sex: 0

DRUGS (2)
  1. TECHNESCAN MAG3 [Suspect]
     Indication: RENAL SCAN
     Dosage: UNK
     Dates: start: 20121210, end: 20121210
  2. ULTRA-TECHNEKOW DTE GENERATOR [Concomitant]
     Indication: RENAL SCAN
     Dosage: 100 MCI, UNK
     Dates: start: 20121205, end: 20121205

REACTIONS (1)
  - Drug ineffective [Unknown]
